FAERS Safety Report 6302655-3 (Version None)
Quarter: 2009Q3

REPORT INFORMATION
  Report Type: 
  Country: None (occurrence: None)
  Receive Date: 20090810
  Receipt Date: 20080917
  Transmission Date: 20100115
  Serious: No
  Sender: FDA-Public Use
  Company Number: A0748640A

PATIENT
  Age: 38 Year
  Sex: Female

DRUGS (4)
  1. TAGAMET [Suspect]
     Dosage: 300MG THREE TIMES PER DAY
     Route: 048
     Dates: start: 20080820
  2. ALDARA [Suspect]
     Route: 061
     Dates: start: 20080820
  3. ATIVAN [Concomitant]
     Dates: start: 20080812
  4. LEXAPRO [Concomitant]
     Dosage: 10MG PER DAY
     Route: 048
     Dates: start: 20080812

REACTIONS (4)
  - PRURITUS [None]
  - PRURITUS GENERALISED [None]
  - RASH [None]
  - VULVOVAGINAL PAIN [None]
